FAERS Safety Report 8106047-6 (Version None)
Quarter: 2012Q1

REPORT INFORMATION
  Report Type: 
  Country: None (occurrence: None)
  Receive Date: 20120202
  Receipt Date: 20091207
  Transmission Date: 20120608
  Serious: No
  Sender: FDA-Public Use
  Company Number: 2009BI040194

PATIENT
  Sex: Male

DRUGS (3)
  1. AVONEX [Concomitant]
     Indication: MULTIPLE SCLEROSIS
     Route: 030
  2. TYSABRI [Suspect]
     Indication: MULTIPLE SCLEROSIS
     Route: 042
  3. TYSABRI [Suspect]
     Dates: start: 20090805, end: 20110426

REACTIONS (4)
  - PROGRESSIVE MULTIPLE SCLEROSIS [None]
  - MUSCLE SPASTICITY [None]
  - SECONDARY PROGRESSIVE MULTIPLE SCLEROSIS [None]
  - MUSCULOSKELETAL DISORDER [None]
